FAERS Safety Report 21308468 (Version 1)
Quarter: 2022Q3

REPORT INFORMATION
  Report Type: Spontaneous
  Country: DE (occurrence: DE)
  Receive Date: 20220908
  Receipt Date: 20220908
  Transmission Date: 20221026
  Serious: Yes (Other)
  Sender: FDA-Public Use
  Company Number: DE-NOVARTISPH-NVSC2018DE014825

PATIENT
  Age: 83 Year
  Sex: Female
  Weight: 65 kg

DRUGS (33)
  1. ROCURONIUM BROMIDE [Suspect]
     Active Substance: ROCURONIUM BROMIDE
     Indication: Product used for unknown indication
     Dosage: UNK
     Route: 065
  2. CEFAZOLIN [Suspect]
     Active Substance: CEFAZOLIN
     Indication: Product used for unknown indication
     Dosage: UNK
     Route: 065
  3. DIPRIVAN [Suspect]
     Active Substance: PROPOFOL
     Indication: Product used for unknown indication
     Dosage: UNK
     Route: 065
  4. ORGADRONE [Suspect]
     Active Substance: DEXAMETHASONE SODIUM PHOSPHATE
     Indication: Product used for unknown indication
     Dosage: UNK
     Route: 065
  5. ULTIVA [Suspect]
     Active Substance: REMIFENTANIL HYDROCHLORIDE
     Indication: Product used for unknown indication
     Dosage: UNK
     Route: 065
  6. CAFEDRINE HYDROCHLORIDE\THEODRENALINE [Suspect]
     Active Substance: CAFEDRINE HYDROCHLORIDE\THEODRENALINE
     Indication: Procedural hypotension
     Dosage: 300 MG (2 ML SOLUTION FOR INJECTION CONTAINS 200 MG CAFEDRINHYDROCHLORID AND 10 MG THEODRENALINHYDRO
     Route: 042
  7. CAFEDRINE HYDROCHLORIDE\THEODRENALINE [Suspect]
     Active Substance: CAFEDRINE HYDROCHLORIDE\THEODRENALINE
     Dosage: 200 MG (2 ML SOLUTION FOR INJECTION CONTAINS 200 MG CAFEDRINHYDROCHLORID AND 10 MG THEODRENALINHYDRO
     Route: 042
     Dates: start: 20170216, end: 20170216
  8. CAFEDRINE HYDROCHLORIDE\THEODRENALINE [Suspect]
     Active Substance: CAFEDRINE HYDROCHLORIDE\THEODRENALINE
     Dosage: 300 MG (2 ML SOLUTION FOR INJECTION CONTAINS 200 MG CAFEDRINHYDROCHLORID AND 10 MG THEODRENALINHYDRO
     Route: 042
  9. CAFEDRINE HYDROCHLORIDE\THEODRENALINE [Suspect]
     Active Substance: CAFEDRINE HYDROCHLORIDE\THEODRENALINE
     Dosage: 200 MG (2 ML SOLUTION FOR INJECTION CONTAINS 200 MG CAFEDRINHYDROCHLORID AND 10 MG THEODRENALINHYDRO
     Route: 042
     Dates: start: 20170216
  10. AMITRIPTYLINE [Concomitant]
     Active Substance: AMITRIPTYLINE
     Indication: Depression
     Dosage: 12.5 MG, QD
     Route: 048
  11. BUPRENORPHINE [Concomitant]
     Active Substance: BUPRENORPHINE
     Indication: Analgesic therapy
     Dosage: 240 MCG, QD
     Route: 062
  12. MIRTAZAPINE [Concomitant]
     Active Substance: MIRTAZAPINE
     Indication: Depression
     Dosage: 30 MG, QD
     Route: 048
  13. METOPROLOL [Concomitant]
     Active Substance: METOPROLOL
     Indication: Hypertension
     Dosage: 95 MG, QD
     Route: 048
  14. CANDESARTAN [Concomitant]
     Active Substance: CANDESARTAN
     Indication: Hypertension
     Dosage: 16 MG, QD
     Route: 048
  15. PANTOZOL [Concomitant]
     Active Substance: PANTOPRAZOLE SODIUM
     Indication: Prophylaxis
     Dosage: 40 MG, QD
     Route: 048
  16. ASPIRIN [Concomitant]
     Active Substance: ASPIRIN
     Indication: Product used for unknown indication
     Dosage: 100 MG, QD
     Route: 048
  17. BROMAZEPAM [Concomitant]
     Active Substance: BROMAZEPAM
     Indication: Depression
     Dosage: 6 MG, QD
     Route: 048
  18. BROMAZEPAM [Concomitant]
     Active Substance: BROMAZEPAM
     Indication: Hypertension
     Dosage: 6 MG, QD
     Route: 048
  19. BROMAZEPAM [Concomitant]
     Active Substance: BROMAZEPAM
     Indication: Analgesic therapy
     Dosage: 95 MG, QD
     Route: 048
  20. BROMAZEPAM [Concomitant]
     Active Substance: BROMAZEPAM
     Dosage: 240 ?G, QD
     Route: 048
  21. BROMAZEPAM [Concomitant]
     Active Substance: BROMAZEPAM
     Dosage: 12.5 MG, QD
     Route: 048
  22. BROMAZEPAM [Concomitant]
     Active Substance: BROMAZEPAM
     Dosage: 16 MG, QD
     Route: 048
  23. BROMAZEPAM [Concomitant]
     Active Substance: BROMAZEPAM
     Dosage: 30 MG, QD
     Route: 048
  24. BROMAZEPAM [Concomitant]
     Active Substance: BROMAZEPAM
     Dosage: 100 MG, QD
     Route: 048
  25. BROMAZEPAM [Concomitant]
     Active Substance: BROMAZEPAM
     Dosage: 6 MG, QD
     Route: 048
  26. BROMAZEPAM [Concomitant]
     Active Substance: BROMAZEPAM
     Dosage: 6 MG, QD
     Route: 048
  27. BROMAZEPAM [Concomitant]
     Active Substance: BROMAZEPAM
     Dosage: 95 MG, QD
     Route: 048
  28. BROMAZEPAM [Concomitant]
     Active Substance: BROMAZEPAM
     Dosage: 240 ?G, QD
     Route: 048
  29. BROMAZEPAM [Concomitant]
     Active Substance: BROMAZEPAM
     Dosage: 12.5 MG, QD
     Route: 048
  30. BROMAZEPAM [Concomitant]
     Active Substance: BROMAZEPAM
     Dosage: 16 MG, QD
     Route: 048
  31. BROMAZEPAM [Concomitant]
     Active Substance: BROMAZEPAM
     Dosage: 30 MG, QD
     Route: 048
  32. BROMAZEPAM [Concomitant]
     Active Substance: BROMAZEPAM
     Dosage: 100 MG, QD
     Route: 048
  33. ASPIRIN [Concomitant]
     Active Substance: ASPIRIN
     Indication: Product used for unknown indication
     Dosage: UNK
     Route: 065

REACTIONS (2)
  - Bradycardia [Recovered/Resolved]
  - Hypertension [Recovered/Resolved]

NARRATIVE: CASE EVENT DATE: 20170216
